FAERS Safety Report 23870741 (Version 1)
Quarter: 2024Q2

REPORT INFORMATION
  Report Type: Spontaneous
  Country: US (occurrence: US)
  Receive Date: 20240518
  Receipt Date: 20240518
  Transmission Date: 20240715
  Serious: No
  Sender: FDA-Public Use
  Company Number: US-HETERO-HET2024US01408

PATIENT
  Sex: Male
  Weight: 156.46 kg

DRUGS (1)
  1. LEVETIRACETAM [Suspect]
     Active Substance: LEVETIRACETAM
     Indication: Seizure
     Dosage: 100 MILLIGRAM PER MILLILITRE, BID
     Route: 048

REACTIONS (2)
  - Headache [Unknown]
  - Dizziness [Unknown]
